FAERS Safety Report 19712221 (Version 1)
Quarter: 2021Q3

REPORT INFORMATION
  Report Type: Report from Study
  Country: US (occurrence: US)
  Receive Date: 20210817
  Receipt Date: 20210817
  Transmission Date: 20211014
  Serious: Yes (Other)
  Sender: FDA-Public Use
  Company Number: US-UCBSA-2021015357

PATIENT
  Age: 30 Year
  Sex: Female

DRUGS (2)
  1. CERTOLIZUMAB PEGOL [Suspect]
     Active Substance: CERTOLIZUMAB PEGOL
     Indication: RHEUMATOID ARTHRITIS
     Dosage: 400 MILLIGRAM, EV 2 WEEKS(QOW)
     Dates: start: 20210330
  2. CERTOLIZUMAB PEGOL [Suspect]
     Active Substance: CERTOLIZUMAB PEGOL
     Dosage: 200 MILLIGRAM, EV 2 WEEKS(QOW)
     Route: 058
     Dates: start: 20210508

REACTIONS (8)
  - Injection site swelling [Not Recovered/Not Resolved]
  - Upper respiratory tract infection [Recovered/Resolved]
  - Injection site erythema [Not Recovered/Not Resolved]
  - Sinusitis [Not Recovered/Not Resolved]
  - Ear infection [Not Recovered/Not Resolved]
  - Injection site discolouration [Not Recovered/Not Resolved]
  - Injection site pain [Recovered/Resolved]
  - Injection site warmth [Not Recovered/Not Resolved]

NARRATIVE: CASE EVENT DATE: 20210330
